FAERS Safety Report 21998854 (Version 3)
Quarter: 2023Q1

REPORT INFORMATION
  Report Type: Spontaneous
  Country: CN (occurrence: CN)
  Receive Date: 20230216
  Receipt Date: 20230224
  Transmission Date: 20230418
  Serious: Yes (Other)
  Sender: FDA-Public Use
  Company Number: CN-002147023-NVSC2023CN031097

PATIENT
  Age: 67 Year
  Sex: Male
  Weight: 69 kg

DRUGS (2)
  1. SACUBITRIL\VALSARTAN [Suspect]
     Active Substance: SACUBITRIL\VALSARTAN
     Indication: Blood pressure decreased
     Dosage: 50 MG, QD
     Route: 048
     Dates: start: 20230201, end: 20230204
  2. SACUBITRIL\VALSARTAN [Suspect]
     Active Substance: SACUBITRIL\VALSARTAN
     Indication: Cardiac failure
     Dosage: 50 MG, QD
     Route: 048

REACTIONS (4)
  - Hypoaesthesia [Recovering/Resolving]
  - Coronary artery disease [Unknown]
  - Angina unstable [Unknown]
  - Hypertension [Unknown]

NARRATIVE: CASE EVENT DATE: 20230204
